FAERS Safety Report 5670803-4 (Version None)
Quarter: 2008Q1

REPORT INFORMATION
  Report Type: 
  Country: None (occurrence: None)
  Receive Date: 20080318
  Receipt Date: 20080307
  Transmission Date: 20080703
  Serious: Yes (Other)
  Sender: FDA-Public Use
  Company Number: DE-JNJFOC-20080303656

PATIENT
  Age: 33 Year
  Sex: Female

DRUGS (2)
  1. TRAMAL TROPFEN [Suspect]
     Route: 048
  2. TRAMAL TROPFEN [Suspect]
     Indication: SCIATICA
     Route: 048

REACTIONS (4)
  - CAESAREAN SECTION [None]
  - DRUG EXPOSURE DURING PREGNANCY [None]
  - DRUG WITHDRAWAL SYNDROME NEONATAL [None]
  - PREMATURE BABY [None]
